FAERS Safety Report 5092572-1 (Version None)
Quarter: 2006Q3

REPORT INFORMATION
  Report Type: 
  Country: None (occurrence: None)
  Receive Date: 20060830
  Receipt Date: 20060710
  Transmission Date: 20061208
  Serious: Yes (Hospitalization, Disabling)
  Sender: FDA-Public Use
  Company Number: CA-AVENTIS-200617170GDDC

PATIENT
  Age: 64 Year
  Sex: Female

DRUGS (6)
  1. ARAVA [Suspect]
     Indication: RHEUMATOID ARTHRITIS
     Dosage: DOSE: UNK
     Route: 048
     Dates: start: 20030401, end: 20030425
  2. OMEGA-3 [Concomitant]
     Dosage: DOSE: UNK
  3. VITAMIN D [Concomitant]
     Dosage: DOSE: UNK
  4. TYLENOL [Concomitant]
     Indication: PAIN
     Dosage: DOSE: UNK
  5. PREDNISONE TAB [Concomitant]
  6. DIDROCAL [Concomitant]
     Dosage: DOSE: 400MG/500MG
     Route: 048

REACTIONS (15)
  - ARTHRALGIA [None]
  - BLISTER [None]
  - ERYTHEMA [None]
  - GANGRENE [None]
  - GLOMERULONEPHRITIS PROLIFERATIVE [None]
  - INSOMNIA [None]
  - LEUKOCYTOCLASTIC VASCULITIS [None]
  - NECROTISING FASCIITIS [None]
  - NEPHRITIS [None]
  - PARAESTHESIA [None]
  - PLANTAR FASCIITIS [None]
  - PROTEINURIA [None]
  - SCAR [None]
  - TOOTH LOSS [None]
  - WEIGHT DECREASED [None]
